FAERS Safety Report 21919738 (Version 1)
Quarter: 2023Q1

REPORT INFORMATION
  Report Type: Spontaneous
  Country: US (occurrence: US)
  Receive Date: 20230127
  Receipt Date: 20230127
  Transmission Date: 20230417
  Serious: Yes (Other)
  Sender: FDA-Public Use
  Company Number: US-SA-SAC20230126000375

PATIENT
  Sex: Female

DRUGS (1)
  1. DULCOLAX NOS [Suspect]
     Active Substance: BISACODYL OR DOCUSATE SODIUM
     Dosage: UNK
     Route: 065

REACTIONS (5)
  - Seizure [Unknown]
  - Flatulence [Unknown]
  - Abdominal distension [Unknown]
  - Feeding disorder [Unknown]
  - Nausea [Unknown]
